FAERS Safety Report 8845214 (Version 1)
Quarter: 2012Q4

REPORT INFORMATION
  Report Type: Spontaneous
  Country: US (occurrence: None)
  Receive Date: 20121011
  Receipt Date: 20121011
  Transmission Date: 20130627
  Serious: Yes (Other)
  Sender: FDA-Public Use
  Company Number: A12-132

PATIENT
  Age: 49 Year
  Sex: Female
  Weight: 73.94 kg

DRUGS (3)
  1. SODIUM CHLORATE [Suspect]
     Indication: IMMUNOSUPPRESSANT DRUG THERAPY
     Dosage: 0.2mL, both arms; 057
     Dates: start: 20120827
  2. ALLERGENIC EXTRACTS [Suspect]
  3. ERGOCALCIFEROL (VITAMIN D2) 25,000 UNIT CAPSULE [Concomitant]

REACTIONS (3)
  - Urticaria [None]
  - Pruritus generalised [None]
  - Syncope [None]
